FAERS Safety Report 11826000 (Version 1)
Quarter: 2015Q4

REPORT INFORMATION
  Report Type: Report from Study
  Country: US (occurrence: US)
  Receive Date: 20151211
  Receipt Date: 20151211
  Transmission Date: 20160305
  Serious: No
  Sender: FDA-Public Use
  Company Number: PHEH2015US025829

PATIENT
  Sex: Female

DRUGS (4)
  1. EXTAVIA [Suspect]
     Active Substance: INTERFERON BETA-1B
     Dosage: WEEKS 3-4 (0.125 MG, QOD) 0.5 ML
     Route: 058
  2. EXTAVIA [Suspect]
     Active Substance: INTERFERON BETA-1B
     Dosage: WEEKS 7+ (0.25 MG, QOD) 1 ML
     Route: 058
  3. EXTAVIA [Suspect]
     Active Substance: INTERFERON BETA-1B
     Indication: MULTIPLE SCLEROSIS
     Dosage: (WEEKS 1-2, (0.062 MG, QOD) 0.25 ML
     Route: 058
     Dates: start: 20150412
  4. EXTAVIA [Suspect]
     Active Substance: INTERFERON BETA-1B
     Dosage: WEEKS 5-6 (0.187 MG, QOD) 0.7 ML
     Route: 058

REACTIONS (1)
  - Wrong technique in product usage process [Unknown]
